FAERS Safety Report 4795273-X (Version None)
Quarter: 2005Q4

REPORT INFORMATION
  Report Type: 
  Country: None (occurrence: None)
  Receive Date: 20051006
  Receipt Date: 20050920
  Transmission Date: 20060501
  Serious: Yes (Hospitalization)
  Sender: FDA-Public Use
  Company Number: DE-2005-016686

PATIENT
  Age: 39 Year
  Sex: Female

DRUGS (5)
  1. BETAFERON (INTERFERON BETA -1B) INJECTION , 250UG [Suspect]
     Indication: MULTIPLE SCLEROSIS
     Dosage: SUBCUTANEOUS
     Route: 058
     Dates: start: 20050801
  2. IBUTAD (IBUPROFEN SODIUM) [Concomitant]
  3. ANTELEPSIN (CLONAZEPAM) [Concomitant]
  4. CLONAZEPAM [Concomitant]
  5. IRON PREPARATIONS [Concomitant]

REACTIONS (9)
  - ABORTION SPONTANEOUS [None]
  - ADENOMYOSIS [None]
  - BENIGN HYDATIDIFORM MOLE [None]
  - DRUG EXPOSURE DURING PREGNANCY [None]
  - DYSMENORRHOEA [None]
  - MENORRHAGIA [None]
  - PLACENTAL DISORDER [None]
  - PREGNANCY [None]
  - UTERINE LEIOMYOMA [None]
